FAERS Safety Report 4724596-5 (Version None)
Quarter: 2005Q3

REPORT INFORMATION
  Report Type: 
  Country: None (occurrence: None)
  Receive Date: 20050726
  Receipt Date: 20050718
  Transmission Date: 20060218
  Serious: Yes (Other)
  Sender: FDA-Public Use
  Company Number: DE-JNJFOC-20050703375

PATIENT
  Sex: Female

DRUGS (7)
  1. IMODIUM [Suspect]
     Indication: DRUG USE FOR UNKNOWN INDICATION
     Route: 048
  2. TINCTURA OPII [Concomitant]
     Route: 048
  3. TINCTURA OPII [Concomitant]
     Route: 048
  4. TINCTURA OPII [Concomitant]
     Route: 048
  5. TINCTURA OPII [Concomitant]
     Route: 048
  6. TINCTURA OPII [Concomitant]
     Route: 048
  7. TINCTURA OPII [Concomitant]
     Route: 048

REACTIONS (1)
  - INTESTINAL OBSTRUCTION [None]
